FAERS Safety Report 21776623 (Version 1)
Quarter: 2022Q4

REPORT INFORMATION
  Report Type: Spontaneous
  Country: CH (occurrence: CH)
  Receive Date: 20221226
  Receipt Date: 20221226
  Transmission Date: 20230113
  Serious: Yes (Life-Threatening, Hospitalization, Other)
  Sender: FDA-Public Use
  Company Number: None

PATIENT
  Age: 80 Year
  Sex: Male
  Weight: 66 kg

DRUGS (5)
  1. BEMPEDOIC ACID\EZETIMIBE [Suspect]
     Active Substance: BEMPEDOIC ACID\EZETIMIBE
     Indication: Dyslipidaemia
     Dosage: 1 DF
     Route: 048
     Dates: start: 20220531, end: 20220701
  2. AMOXICILLIN\CLAVULANATE POTASSIUM [Suspect]
     Active Substance: AMOXICILLIN\CLAVULANATE POTASSIUM
     Indication: Product used for unknown indication
     Dosage: 1 DF CO-AMOXICILLIN (AMOXICILLIN, CLAVULANIC ACID) ORAL INTAKE FROM 07/14/2022 FOR 5 DAYS (UNTIL 07/
     Route: 048
     Dates: start: 20220714, end: 20220718
  3. ACETAMINOPHEN\CODEINE PHOSPHATE [Suspect]
     Active Substance: ACETAMINOPHEN\CODEINE PHOSPHATE
     Indication: Pyrexia
     Dosage: 1 DF, AS NEEDED CHOLESTATIC HEPATOPATHY BACO-DAFALGAN? (DAFALGAN, CODEINE) ORAL USE AS NEEDED UP TO
     Route: 048
     Dates: start: 202207, end: 20220801
  4. IBUPROFEN [Suspect]
     Active Substance: IBUPROFEN
     Indication: Product used for unknown indication
     Dosage: 1 DF, AS NEEDED BRUFEN? (IBUPROFEN) ORAL USE AS NEEDED DURING JULY/AUGUST 2022, NO LATER THAN 8/15/2
     Route: 048
     Dates: start: 202207, end: 20220815
  5. LEVOFLOXACIN [Suspect]
     Active Substance: LEVOFLOXACIN
     Indication: Product used for unknown indication
     Dosage: 1 DF TAVANIC? (LEVOFLOXACIN) ORAL USE FROM 08/20/2022 UNTIL 08/29/2022 (10 DAYS).
     Route: 048
     Dates: start: 20220820, end: 20220829

REACTIONS (1)
  - Drug-induced liver injury [Recovering/Resolving]

NARRATIVE: CASE EVENT DATE: 20220815
